FAERS Safety Report 9310846 (Version 3)
Quarter: 2013Q2

REPORT INFORMATION
  Report Type: Spontaneous
  Country: TR (occurrence: TR)
  Receive Date: 20130528
  Receipt Date: 20130617
  Transmission Date: 20140414
  Serious: Yes (Hospitalization, Other)
  Sender: FDA-Public Use
  Company Number: TR-RANBAXY-2013RR-69302

PATIENT
  Age: 48 Year
  Sex: Female

DRUGS (1)
  1. GLUKOFEN [Suspect]
     Indication: TYPE 2 DIABETES MELLITUS
     Dosage: 850 MG, BID
     Route: 048

REACTIONS (3)
  - Angioedema [Recovered/Resolved]
  - Dyspnoea [None]
  - Blood pressure diastolic increased [None]
